FAERS Safety Report 5951864-1 (Version None)
Quarter: 2008Q4

REPORT INFORMATION
  Report Type: 
  Country: None (occurrence: None)
  Receive Date: 20081113
  Receipt Date: 20081106
  Transmission Date: 20090506
  Serious: Yes (Hospitalization)
  Sender: FDA-Public Use
  Company Number: FR-ELI_LILLY_AND_COMPANY-FR200811001181

PATIENT
  Sex: Male

DRUGS (9)
  1. HUMALOG [Suspect]
     Indication: DIABETES MELLITUS
     Dosage: 24 IU, EACH MORNING
     Dates: end: 20080901
  2. HUMALOG [Suspect]
     Dosage: 22 IU, EACH EVENING
     Dates: end: 20080901
  3. HUMALOG [Suspect]
     Dosage: 20 IU, EACH MORNING
     Dates: start: 20080927
  4. HUMALOG [Suspect]
     Dosage: 12 IU, EACH EVENING
     Dates: start: 20080927
  5. PROSCAR [Concomitant]
     Route: 048
  6. EUPRESSYL [Concomitant]
     Indication: HYPERTENSION
     Route: 048
  7. LESCOL [Concomitant]
     Indication: HYPERCHOLESTEROLAEMIA
     Route: 048
  8. ZANIDIP [Concomitant]
     Indication: HYPERTENSION
     Dosage: 10 MG, DAILY (1/D)
     Route: 048
  9. COAPROVEL [Concomitant]
     Indication: HYPERTENSION
     Dosage: 300 MG, DAILY (1/D)
     Route: 048

REACTIONS (1)
  - HYPOGLYCAEMIC COMA [None]
